FAERS Safety Report 6155937-2 (Version None)
Quarter: 2009Q2

REPORT INFORMATION
  Report Type: 
  Country: None (occurrence: None)
  Receive Date: 20090415
  Receipt Date: 20090407
  Transmission Date: 20091009
  Serious: Yes (Congenital Anomaly)
  Sender: FDA-Public Use
  Company Number: GB-ROCHE-626425

PATIENT
  Age: 25 Year
  Sex: Female
  Weight: 94 kg

DRUGS (1)
  1. XENICAL [Suspect]
     Indication: OBESITY
     Route: 065

REACTIONS (2)
  - ABORTION INDUCED [None]
  - SPINA BIFIDA [None]
